FAERS Safety Report 15084545 (Version 4)
Quarter: 2018Q3

REPORT INFORMATION
  Report Type: Report from Study
  Country: US (occurrence: US)
  Receive Date: 20180628
  Receipt Date: 20180905
  Transmission Date: 20181010
  Serious: Yes (Other)
  Sender: FDA-Public Use
  Company Number: US-SA-2015SA006700

PATIENT
  Age: 61 Year
  Sex: Female

DRUGS (4)
  1. TERIFLUNOMIDE [Suspect]
     Active Substance: TERIFLUNOMIDE
     Indication: MULTIPLE SCLEROSIS
     Dosage: 7 MG,QD
     Route: 048
     Dates: start: 20140707
  2. TERIFLUNOMIDE [Suspect]
     Active Substance: TERIFLUNOMIDE
     Dosage: 7 MG,QD
     Route: 048
     Dates: start: 2015, end: 20150705
  3. TERIFLUNOMIDE [Suspect]
     Active Substance: TERIFLUNOMIDE
     Dosage: UNK UNK, QD
     Route: 048
     Dates: end: 20150530
  4. TERIFLUNOMIDE [Suspect]
     Active Substance: TERIFLUNOMIDE
     Dosage: 7 MG,QD
     Route: 048
     Dates: start: 2015, end: 20150806

REACTIONS (17)
  - Feeling hot [Unknown]
  - Blood pressure increased [Unknown]
  - Drug interaction [Unknown]
  - Temporal arteritis [Unknown]
  - Burning sensation [Unknown]
  - Arthropathy [Unknown]
  - Seizure [Unknown]
  - Blood cholesterol increased [Unknown]
  - Arthralgia [Unknown]
  - Balance disorder [Recovered/Resolved]
  - Myalgia [Unknown]
  - Headache [Not Recovered/Not Resolved]
  - Drug dose omission [Unknown]
  - Malaise [Unknown]
  - Unevaluable event [Unknown]
  - Arthritis [Unknown]
  - Hypersensitivity [Unknown]

NARRATIVE: CASE EVENT DATE: 201407
